FAERS Safety Report 7089121-5 (Version None)
Quarter: 2010Q4

REPORT INFORMATION
  Report Type: 
  Country: None (occurrence: None)
  Receive Date: 20101108
  Receipt Date: 20101026
  Transmission Date: 20110411
  Serious: Yes (Other)
  Sender: FDA-Public Use
  Company Number: US-BRISTOL-MYERS SQUIBB COMPANY-15364128

PATIENT
  Age: 41 Year
  Sex: Female

DRUGS (1)
  1. MITOMYCIN [Suspect]
     Route: 031

REACTIONS (1)
  - CORNEAL OPACITY [None]
